FAERS Safety Report 25505408 (Version 2)
Quarter: 2025Q3

REPORT INFORMATION
  Report Type: Spontaneous
  Country: US (occurrence: US)
  Receive Date: 20250702
  Receipt Date: 20250814
  Transmission Date: 20251021
  Serious: Yes (Other)
  Sender: VERTEX
  Company Number: US-VERTEX PHARMACEUTICALS-2025-010528

PATIENT
  Sex: Female

DRUGS (2)
  1. SUZETRIGINE [Suspect]
     Active Substance: SUZETRIGINE
     Indication: Pain
     Dosage: 100 MG, SINGLE
     Route: 048
     Dates: start: 20250527, end: 20250527
  2. SUZETRIGINE [Suspect]
     Active Substance: SUZETRIGINE
     Dosage: 50 MG, BID
     Route: 048
     Dates: start: 20250528, end: 20250602

REACTIONS (2)
  - Wheezing [Recovered/Resolved]
  - Rash [Recovered/Resolved]

NARRATIVE: CASE EVENT DATE: 20250602
